FAERS Safety Report 11650493 (Version 1)
Quarter: 2015Q4

REPORT INFORMATION
  Report Type: Spontaneous
  Country: CA (occurrence: CA)
  Receive Date: 20151021
  Receipt Date: 20151021
  Transmission Date: 20160304
  Serious: Yes (Other)
  Sender: FDA-Public Use
  Company Number: CA-TEVA-601841ACC

PATIENT
  Age: 67 Year
  Sex: Male
  Weight: 74 kg

DRUGS (10)
  1. ASA [Concomitant]
     Active Substance: ASPIRIN
  2. COLACE [Concomitant]
     Active Substance: DOCUSATE SODIUM
  3. LANSOPRAZOLE. [Concomitant]
     Active Substance: LANSOPRAZOLE
  4. IMOVANE [Concomitant]
     Active Substance: ZOPICLONE
  5. ANCEF [Concomitant]
     Active Substance: CEFAZOLIN SODIUM
     Route: 030
  6. KEFLEX [Concomitant]
     Active Substance: CEPHALEXIN
  7. BISOPROLOL [Suspect]
     Active Substance: BISOPROLOL
     Indication: ACUTE MYOCARDIAL INFARCTION
     Dosage: 10 MILLIGRAM DAILY;
     Route: 065
  8. PANTOLOC [Concomitant]
     Active Substance: PANTOPRAZOLE SODIUM
  9. LIPITOR [Concomitant]
     Active Substance: ATORVASTATIN CALCIUM
  10. EZETROL [Concomitant]
     Active Substance: EZETIMIBE

REACTIONS (4)
  - Nasal congestion [Recovered/Resolved]
  - Choking sensation [Recovered/Resolved]
  - Hypoacusis [Recovered/Resolved]
  - Vasomotor rhinitis [Recovered/Resolved]
